FAERS Safety Report 9198068 (Version 2)
Quarter: 2013Q2

REPORT INFORMATION
  Report Type: Spontaneous
  Country: DK (occurrence: DK)
  Receive Date: 20130329
  Receipt Date: 20130415
  Transmission Date: 20140414
  Serious: Yes (Disabling)
  Sender: FDA-Public Use
  Company Number: PHHY2013DK028740

PATIENT
  Sex: Female

DRUGS (6)
  1. SIMVASTATIN SANDOZ [Suspect]
     Indication: HYPERCHOLESTEROLAEMIA
     Dosage: 40 MG, QD
     Route: 048
  2. SIMVASTATIN ACTAVIS [Suspect]
     Indication: HYPERCHOLESTEROLAEMIA
     Dosage: 40 MG, QD
     Route: 048
  3. SIMVASTATIN KRKA [Suspect]
     Indication: HYPERCHOLESTEROLAEMIA
     Dosage: 40 MG, QD
     Route: 048
  4. CENTYL MED KALIUMKLORID [Concomitant]
     Indication: HYPERTENSION
     Dates: start: 20050922
  5. CORODIL [Concomitant]
     Indication: HYPERTENSION
     Dates: start: 20050922
  6. HJERTEMAGNYL [Concomitant]
     Indication: ANTICOAGULANT THERAPY
     Dates: start: 20050922

REACTIONS (3)
  - Impaired work ability [Not Recovered/Not Resolved]
  - Burnout syndrome [Not Recovered/Not Resolved]
  - Depression [Recovered/Resolved]
